FAERS Safety Report 23659290 (Version 2)
Quarter: 2025Q3

REPORT INFORMATION
  Report Type: Spontaneous
  Country: JP (occurrence: JP)
  Receive Date: 20240321
  Receipt Date: 20250730
  Transmission Date: 20251021
  Serious: Yes (Hospitalization)
  Sender: EISAI
  Company Number: JP-Eisai Medical Research-EC-2022-130535

PATIENT
  Age: 49 Year
  Sex: Female

DRUGS (5)
  1. LENVIMA [Suspect]
     Active Substance: LENVATINIB
     Indication: Endometrial cancer
     Dates: start: 20220803, end: 2022
  2. LENVIMA [Suspect]
     Active Substance: LENVATINIB
     Dates: start: 2022, end: 202212
  3. KEYTRUDA [Concomitant]
     Active Substance: PEMBROLIZUMAB
     Indication: Endometrial cancer
     Dates: start: 20220801
  4. KEYTRUDA [Concomitant]
     Active Substance: PEMBROLIZUMAB
     Dates: start: 20230406
  5. AMLODIPINE [Concomitant]
     Active Substance: AMLODIPINE BESYLATE
     Indication: Hypertension
     Dates: start: 20220409

REACTIONS (2)
  - Sepsis [Recovering/Resolving]
  - Small intestinal perforation [Recovering/Resolving]

NARRATIVE: CASE EVENT DATE: 20221213
